FAERS Safety Report 15655737 (Version 1)
Quarter: 2018Q4

REPORT INFORMATION
  Report Type: Spontaneous
  Country: US (occurrence: US)
  Receive Date: 20181126
  Receipt Date: 20181126
  Transmission Date: 20190205
  Serious: Yes (Disabling, Other)
  Sender: FDA-Public Use
  Company Number: US-ELI_LILLY_AND_COMPANY-US201811006924

PATIENT
  Sex: Male

DRUGS (1)
  1. HUMALOG [Suspect]
     Active Substance: INSULIN LISPRO
     Indication: DIABETES MELLITUS
     Dosage: UNK UNK, UNKNOWN
     Route: 065
     Dates: start: 2008

REACTIONS (7)
  - Dizziness [Unknown]
  - Visual impairment [Unknown]
  - Gait disturbance [Unknown]
  - Post procedural complication [Unknown]
  - Fall [Unknown]
  - Feeling abnormal [Unknown]
  - Fatigue [Unknown]
